FAERS Safety Report 8199603-0 (Version None)
Quarter: 2012Q1

REPORT INFORMATION
  Report Type: 
  Country: None (occurrence: None)
  Receive Date: 20120310
  Receipt Date: 20120302
  Transmission Date: 20120608
  Serious: Yes (Other)
  Sender: FDA-Public Use
  Company Number: JP-BRISTOL-MYERS SQUIBB COMPANY-15978703

PATIENT
  Age: 5 Year
  Sex: Female

DRUGS (2)
  1. VEPESID [Suspect]
     Indication: NONGERMINOMATOUS GERM CELL TUMOUR OF THE CNS
  2. CISPLATIN [Suspect]
     Indication: NONGERMINOMATOUS GERM CELL TUMOUR OF THE CNS

REACTIONS (4)
  - LEUKOPENIA [None]
  - SUPERIOR SAGITTAL SINUS THROMBOSIS [None]
  - CONVULSION [None]
  - HEMIPARESIS [None]
